FAERS Safety Report 4627040-1 (Version None)
Quarter: 2005Q2

REPORT INFORMATION
  Report Type: 
  Country: None (occurrence: None)
  Receive Date: 20050405
  Receipt Date: 20050106
  Transmission Date: 20051028
  Serious: Yes (Hospitalization)
  Sender: FDA-Public Use
  Company Number: PHRM2005FR00495

PATIENT
  Age: 84 Year
  Sex: Female
  Weight: 59 kg

DRUGS (6)
  1. FEMARA [Suspect]
     Indication: BREAST CANCER METASTATIC
     Dosage: 2.5 MG, QD
     Route: 048
     Dates: start: 20040201, end: 20041101
  2. DIGOXIN [Concomitant]
     Dosage: 1 DF, QD
  3. LASILIX [Concomitant]
     Dosage: 40 MG, QD
     Route: 048
  4. TRIATEC [Concomitant]
     Route: 048
  5. DIAFUSOR [Concomitant]
     Dosage: 5 MG, QD
     Route: 048
  6. VASTAREL [Concomitant]
     Dosage: 20 MG, TID
     Route: 048

REACTIONS (3)
  - NEPHROTIC SYNDROME [None]
  - OEDEMA PERIPHERAL [None]
  - PROTEINURIA [None]
